FAERS Safety Report 8407834-7 (Version None)
Quarter: 2012Q2

REPORT INFORMATION
  Report Type: 
  Country: None (occurrence: None)
  Receive Date: 20120604
  Receipt Date: 20120601
  Transmission Date: 20120825
  Serious: Yes (Death)
  Sender: FDA-Public Use
  Company Number: AU-B.I. PHARMACEUTICALS,INC./RIDGEFIELD-2012-AU-00745AU

PATIENT
  Sex: Male

DRUGS (7)
  1. PRADAXA [Suspect]
     Indication: CEREBROVASCULAR ACCIDENT PROPHYLAXIS
     Dosage: 220 MG
     Dates: start: 20110805
  2. PRADAXA [Suspect]
     Indication: ATRIAL FIBRILLATION
  3. ATENOLOL [Concomitant]
     Dosage: 25 MG
  4. LASIX [Concomitant]
     Dosage: 20 MG
  5. PERINDOPRIL ERBUMINE [Concomitant]
     Dosage: 5 MG
  6. FOSAMAX [Concomitant]
     Dosage: 70 MG
  7. ALLOPURINOL [Concomitant]
     Dosage: 300 MG

REACTIONS (1)
  - DEATH [None]
